FAERS Safety Report 4681068-4 (Version None)
Quarter: 2005Q2

REPORT INFORMATION
  Report Type: 
  Country: None (occurrence: None)
  Receive Date: 20050603
  Receipt Date: 20050601
  Transmission Date: 20051028
  Serious: Yes (Hospitalization)
  Sender: FDA-Public Use
  Company Number: US-GLAXOSMITHKLINE-A0560784A

PATIENT
  Sex: Female

DRUGS (11)
  1. REQUIP [Suspect]
     Indication: PARKINSON'S DISEASE
     Dosage: 1MG FOUR TIMES PER DAY
     Route: 048
     Dates: start: 20040101
  2. COGENTIN [Concomitant]
  3. PLAVIX [Concomitant]
  4. TOPROL-XL [Concomitant]
  5. STALEVO 100 [Concomitant]
  6. LIPITOR [Concomitant]
  7. ZOLOFT [Concomitant]
  8. NEURONTIN [Concomitant]
  9. ECOTRIN [Concomitant]
  10. ARICEPT [Concomitant]
  11. COSOPT [Concomitant]

REACTIONS (7)
  - CEREBROVASCULAR ACCIDENT [None]
  - CHOKING [None]
  - CONCUSSION [None]
  - DRUG ADMINISTRATION ERROR [None]
  - DYSPHAGIA [None]
  - FALL [None]
  - SKULL FRACTURE [None]
